FAERS Safety Report 10263377 (Version 1)
Quarter: 2014Q2

REPORT INFORMATION
  Report Type: Spontaneous
  Country: CN (occurrence: CN)
  Receive Date: 20140626
  Receipt Date: 20140626
  Transmission Date: 20141212
  Serious: Yes (Other)
  Sender: FDA-Public Use
  Company Number: CN-ABBVIE-14P-035-1251425-00

PATIENT
  Age: 32 Year
  Sex: Female

DRUGS (4)
  1. VALPROATE SODIUM/VALPROIC ACID [Suspect]
     Indication: EPILEPSY
     Route: 048
     Dates: start: 2006, end: 201209
  2. VALPROATE SODIUM/VALPROIC ACID [Suspect]
     Dosage: 500 MG IN MORNING, 250 MG IN EVENING
     Route: 048
     Dates: start: 201209, end: 201308
  3. VALPROATE SODIUM/VALPROIC ACID [Suspect]
     Route: 048
     Dates: start: 201308
  4. ALL OTHER THERAPEUTIC PRODUCTS [Concomitant]
     Indication: PRODUCT USED FOR UNKNOWN INDICATION

REACTIONS (5)
  - Syncope [Recovered/Resolved]
  - Epilepsy [Recovered/Resolved]
  - Weight increased [Not Recovered/Not Resolved]
  - Diarrhoea [Recovered/Resolved]
  - Weight decreased [Recovered/Resolved]
